FAERS Safety Report 9619760 (Version 3)
Quarter: 2014Q2

REPORT INFORMATION
  Report Type: Report from Study
  Country: IN (occurrence: IN)
  Receive Date: 20131014
  Receipt Date: 20140519
  Transmission Date: 20141212
  Serious: Yes (Hospitalization, Disabling)
  Sender: FDA-Public Use
  Company Number: IN-GLAXOSMITHKLINE-B0916647B

PATIENT
  Age: 23 Year
  Sex: Male
  Weight: 50 kg

DRUGS (1)
  1. NELARABINE [Suspect]
     Indication: LEUKAEMIA
     Route: 065
     Dates: start: 20130710

REACTIONS (1)
  - Demyelination [Recovering/Resolving]
